FAERS Safety Report 23327030 (Version 2)
Quarter: 2023Q4

REPORT INFORMATION
  Report Type: Spontaneous
  Country: US (occurrence: US)
  Receive Date: 20231221
  Receipt Date: 20231227
  Transmission Date: 20240109
  Serious: No
  Sender: FDA-Public Use
  Company Number: US-PFIZER INC-PV202300203668

PATIENT
  Age: 68 Year
  Sex: Male
  Weight: 65.3 kg

DRUGS (4)
  1. TALZENNA [Suspect]
     Active Substance: TALAZOPARIB TOSYLATE
     Dosage: 0.35 MG, 1X/DAY
     Route: 048
  2. LOMOTIL [Concomitant]
     Active Substance: ATROPINE SULFATE\DIPHENOXYLATE HYDROCHLORIDE
     Indication: Diarrhoea
     Dosage: 2.5-0.025 MG/TAKE 1 TABLET BY MOUTH 3 (THREE) TIMES DAILY
     Route: 048
  3. NEURONTIN [Concomitant]
     Active Substance: GABAPENTIN
     Dosage: TAKE 2 CAPSULES (600 MG) BY MOUTH TWICE DAILY
     Route: 048
  4. PROCARDIA [Concomitant]
     Active Substance: NIFEDIPINE
     Dosage: TAKE 1 TABLET (90 MG TOTAL) BY MOUTH 2 (TWO) TIMES A DAY
     Route: 048

REACTIONS (1)
  - Pain [Unknown]

NARRATIVE: CASE EVENT DATE: 20230101
